FAERS Safety Report 6340263-9 (Version None)
Quarter: 2009Q3

REPORT INFORMATION
  Report Type: 
  Country: None (occurrence: None)
  Receive Date: 20090902
  Receipt Date: 20090820
  Transmission Date: 20100115
  Serious: Yes (Hospitalization)
  Sender: FDA-Public Use
  Company Number: OMPQ-NO-0907S-0654

PATIENT
  Age: 73 Year
  Sex: Male

DRUGS (11)
  1. OMNIPAQUE 300 [Suspect]
     Indication: ATRIAL FIBRILLATION
     Dosage: 70 ML, SINGLE DOSE, I.V.
     Route: 042
     Dates: start: 20090501, end: 20090501
  2. INDERAL [Concomitant]
  3. DEXTROMETHORPHAN (SISAAL) [Concomitant]
  4. MECYSTEINE (PECTITE) [Concomitant]
  5. AMBROXOLHYDROCHLORIDE (ANKISOL) [Concomitant]
  6. ENALAPRIL MALEATE [Concomitant]
  7. ACETYLSALICYLIC ACID (BAYASPIRIN) [Concomitant]
  8. DIGOXIN (HALFDIGOXIN) [Concomitant]
  9. LANSOPRAZOLE (TAKEPRON DO) [Concomitant]
  10. POVIDONE-IODINE (NEOJODIN) [Concomitant]
  11. CETYLPYRIDINIUM CHLORIDE (SPROL) [Concomitant]

REACTIONS (12)
  - ABDOMINAL PAIN LOWER [None]
  - CHEST DISCOMFORT [None]
  - DIZZINESS [None]
  - EPISTAXIS [None]
  - HAEMOPTYSIS [None]
  - MALAISE [None]
  - MEGAKARYOCYTES DECREASED [None]
  - MICTURITION URGENCY [None]
  - PALPITATIONS [None]
  - PURPURA [None]
  - TACHYCARDIA [None]
  - THROMBOCYTOPENIA [None]
